FAERS Safety Report 7767233-8 (Version None)
Quarter: 2011Q3

REPORT INFORMATION
  Report Type: 
  Country: None (occurrence: None)
  Receive Date: 20110922
  Receipt Date: 20100811
  Transmission Date: 20111222
  Serious: No
  Sender: FDA-Public Use
  Company Number: US-ASTRAZENECA-2006UW23323

PATIENT
  Age: 15116 Day
  Sex: Male
  Weight: 104.3 kg

DRUGS (23)
  1. SEROQUEL [Suspect]
     Dosage: 25 - 200 MG DAILY
     Route: 048
     Dates: start: 20000428, end: 20010508
  2. RISPERDAL [Concomitant]
     Dates: start: 20020304, end: 20020415
  3. RISPERDAL [Concomitant]
     Dates: start: 20020304, end: 20020415
  4. PROZAC [Concomitant]
     Indication: DEPRESSION
     Dates: start: 20071101
  5. DOSS [Concomitant]
     Dates: start: 20010503
  6. BENADRYL [Concomitant]
     Indication: RHINITIS ALLERGIC
     Dosage: IF NEEDED
     Dates: start: 20071101
  7. ZYPREXA [Concomitant]
     Indication: DEPRESSION
     Dosage: 10 - 15 MG DAILY
     Dates: start: 20000426, end: 20010503
  8. SEROQUEL [Suspect]
     Dosage: 25 - 200 MG DAILY
     Route: 048
     Dates: start: 20000428, end: 20010508
  9. PROZAC [Concomitant]
     Indication: ANXIETY
     Dates: start: 20071101
  10. LISINOPRIL [Concomitant]
     Route: 048
     Dates: start: 20071101
  11. SEROQUEL [Suspect]
     Indication: POST-TRAUMATIC STRESS DISORDER
     Route: 048
     Dates: start: 19970101
  12. WELLBUTRIN SR [Concomitant]
     Dates: start: 20000428
  13. CITALOPRAM HYDROBROMIDE [Concomitant]
     Route: 048
     Dates: start: 20000428
  14. SEROQUEL [Suspect]
     Dosage: 25 - 200 MG DAILY
     Route: 048
     Dates: start: 20000428, end: 20010508
  15. RISPERDAL [Concomitant]
     Indication: BIPOLAR DISORDER
     Dosage: STRENGTH - 4- 6 MG, DOSE - 4 - 6 MG DAILY
     Dates: start: 20010515
  16. ZYPREXA [Concomitant]
     Indication: BIPOLAR DISORDER
     Dosage: 10 - 15 MG DAILY
     Dates: start: 20000426, end: 20010503
  17. TRAZODONE HYDROCHLORIDE [Concomitant]
     Dates: start: 20070807
  18. NEURONTIN [Concomitant]
     Dates: start: 20000426
  19. SEROQUEL [Suspect]
     Indication: DEPRESSION
     Route: 048
     Dates: start: 19970101
  20. SEROQUEL [Suspect]
     Indication: BIPOLAR DISORDER
     Route: 048
     Dates: start: 19970101
  21. RISPERDAL [Concomitant]
     Indication: DEPRESSION
     Dosage: STRENGTH - 4- 6 MG, DOSE - 4 - 6 MG DAILY
     Dates: start: 20010515
  22. ZYPREXA [Concomitant]
     Indication: POST-TRAUMATIC STRESS DISORDER
     Dosage: 10 - 15 MG DAILY
     Dates: start: 20000426, end: 20010503
  23. SIMVASTATIN [Concomitant]
     Route: 048
     Dates: start: 20071101

REACTIONS (4)
  - DIABETES MELLITUS [None]
  - TYPE 2 DIABETES MELLITUS [None]
  - DIABETIC COMPLICATION [None]
  - WEIGHT INCREASED [None]
